FAERS Safety Report 11808274 (Version 2)
Quarter: 2015Q4

REPORT INFORMATION
  Report Type: Spontaneous
  Country: US (occurrence: US)
  Receive Date: 20151207
  Receipt Date: 20151211
  Transmission Date: 20160305
  Serious: No
  Sender: FDA-Public Use
  Company Number: US-ASTRAZENECA-2015SF22010

PATIENT
  Sex: Female

DRUGS (1)
  1. TAGRISSO [Suspect]
     Active Substance: OSIMERTINIB
     Dosage: UNKNOWN
     Route: 065

REACTIONS (5)
  - Therapeutic response unexpected [Unknown]
  - Lid sulcus deepened [Unknown]
  - Weight increased [Unknown]
  - Mucous membrane disorder [Unknown]
  - Pollakiuria [Unknown]
